FAERS Safety Report 8500343-6 (Version None)
Quarter: 2012Q3

REPORT INFORMATION
  Report Type: 
  Country: None (occurrence: None)
  Receive Date: 20120710
  Receipt Date: 20120629
  Transmission Date: 20120928
  Serious: No
  Sender: FDA-Public Use
  Company Number: US-JNJFOC-20120700558

PATIENT
  Sex: Female

DRUGS (4)
  1. VITAMIN B-12 [Concomitant]
     Route: 065
  2. REMICADE [Suspect]
     Indication: CROHN'S DISEASE
     Route: 042
  3. REMICADE [Suspect]
     Route: 042
     Dates: start: 20120606
  4. PERCOCET [Concomitant]
     Route: 065

REACTIONS (3)
  - FURUNCLE [None]
  - ACARODERMATITIS [None]
  - ALOPECIA [None]
